FAERS Safety Report 17228789 (Version 1)
Quarter: 2019Q4

REPORT INFORMATION
  Report Type: Spontaneous
  Country: US (occurrence: US)
  Receive Date: 20191210
  Receipt Date: 20191210
  Transmission Date: 20200122
  Serious: No
  Sender: FDA-Public Use
  Company Number: None

PATIENT
  Age: 15 Year
  Sex: Female

DRUGS (1)
  1. TOBRAMYCIN NEB 300MG/5ML [Suspect]
     Active Substance: TOBRAMYCIN
     Dates: start: 201809

REACTIONS (4)
  - Pulmonary function test abnormal [None]
  - Nasopharyngitis [None]
  - Chest discomfort [None]
  - Dry throat [None]

NARRATIVE: CASE EVENT DATE: 20190603
